FAERS Safety Report 15798430 (Version 1)
Quarter: 2019Q1

REPORT INFORMATION
  Report Type: Spontaneous
  Country: CN (occurrence: CN)
  Receive Date: 20190108
  Receipt Date: 20190108
  Transmission Date: 20190417
  Serious: Yes (Disabling, Other)
  Sender: FDA-Public Use
  Company Number: CN-PFIZER INC-2019001229

PATIENT
  Age: 59 Year
  Sex: Male
  Weight: 65 kg

DRUGS (8)
  1. LIPITOR [Suspect]
     Active Substance: ATORVASTATIN CALCIUM
     Indication: CEREBRAL INFARCTION
     Dosage: 40 MG, 1X/DAY (QUAQUE NOCTE)
     Route: 048
     Dates: start: 20181014, end: 20181031
  2. BUTYLPHTHALIDE [Suspect]
     Active Substance: BUTYLPHTHALIDE
     Indication: CEREBRAL INFARCTION
     Dosage: 100 ML, 2X/DAY (IVGTT, WITH SODIUM CHLORIDE INJECTION)
     Route: 041
     Dates: start: 20181014, end: 20181028
  3. JIN AO KANG [OMEPRAZOLE] [Suspect]
     Active Substance: OMEPRAZOLE
     Indication: CEREBRAL INFARCTION
     Dosage: 20 MG, 2X/DAY
     Route: 048
     Dates: start: 20181025, end: 20181031
  4. TAI JIA [Concomitant]
     Active Substance: CLOPIDOGREL BISULFATE
     Indication: CEREBRAL INFARCTION
     Dosage: 75 MG, 1X/DAY
     Route: 048
     Dates: start: 20181010, end: 20181024
  5. ASPIRIN (E.C.) [Concomitant]
     Active Substance: ASPIRIN
     Indication: ANTIPLATELET THERAPY
  6. TYLENOL ER [Suspect]
     Active Substance: ACETAMINOPHEN
     Indication: ANALGESIC THERAPY
     Dosage: 0.65 G, 1X/DAY
     Route: 048
     Dates: start: 20181023, end: 20181029
  7. ASPIRIN (E.C.) [Concomitant]
     Active Substance: ASPIRIN
     Indication: CEREBRAL INFARCTION
     Dosage: 0.1 G, 1X/DAY
     Route: 048
     Dates: start: 20181014, end: 20181031
  8. TAI JIA [Concomitant]
     Active Substance: CLOPIDOGREL BISULFATE
     Indication: ANTIPLATELET THERAPY

REACTIONS (3)
  - Bilirubin conjugated increased [Unknown]
  - Lung infection [Unknown]
  - Hepatic enzyme abnormal [Unknown]

NARRATIVE: CASE EVENT DATE: 20181023
